FAERS Safety Report 9117323 (Version 1)
Quarter: 2013Q1

REPORT INFORMATION
  Report Type: Spontaneous
  Country: US (occurrence: US)
  Receive Date: 20130225
  Receipt Date: 20130225
  Transmission Date: 20140127
  Serious: No
  Sender: FDA-Public Use
  Company Number: US-009507513-1302USA010929

PATIENT
  Sex: Female

DRUGS (4)
  1. ZIOPTAN [Suspect]
     Indication: GLAUCOMA
     Dosage: UNK
     Route: 047
     Dates: start: 201208, end: 201208
  2. TIMOPTIC [Concomitant]
  3. ALPHAGAN [Concomitant]
  4. CENESTIN [Concomitant]

REACTIONS (2)
  - Eye irritation [Recovered/Resolved]
  - Hypersensitivity [Unknown]
